FAERS Safety Report 6737548-0 (Version None)
Quarter: 2010Q2

REPORT INFORMATION
  Report Type: 
  Country: None (occurrence: None)
  Receive Date: 20100521
  Receipt Date: 20100521
  Transmission Date: 20101027
  Serious: No
  Sender: FDA-Public Use
  Company Number: None

PATIENT
  Sex: Female
  Weight: 10.2 kg

DRUGS (3)
  1. ONCASPAR [Suspect]
     Indication: ACUTE LYMPHOCYTIC LEUKAEMIA
     Dosage: 1225 I.U. Q8WEEKS I.M.
     Route: 030
     Dates: start: 20100326
  2. ONCASPAR [Suspect]
     Indication: ACUTE LYMPHOCYTIC LEUKAEMIA
     Dosage: 1225 I.U. Q8WEEKS I.M.
     Route: 030
     Dates: start: 20100517
  3. VINCRISTINE [Suspect]

REACTIONS (1)
  - URTICARIA [None]
